FAERS Safety Report 6361370-0 (Version None)
Quarter: 2009Q3

REPORT INFORMATION
  Report Type: 
  Country: None (occurrence: None)
  Receive Date: 20090918
  Receipt Date: 20090911
  Transmission Date: 20100115
  Serious: Yes (Hospitalization)
  Sender: FDA-Public Use
  Company Number: B0594026A

PATIENT
  Sex: Male

DRUGS (4)
  1. AUGMENTIN '125' [Suspect]
     Dosage: 1G PER DAY
     Route: 048
     Dates: start: 20090811, end: 20090816
  2. CARDIRENE [Concomitant]
     Indication: THROMBOSIS PROPHYLAXIS
     Dosage: 160MG PER DAY
     Route: 048
  3. LANOXIN [Concomitant]
     Indication: ARRHYTHMIA
     Route: 048
  4. UNKNOWN DRUG [Concomitant]
     Indication: BENIGN PROSTATIC HYPERPLASIA
     Route: 048

REACTIONS (3)
  - CHROMATURIA [None]
  - FAECES DISCOLOURED [None]
  - HEPATITIS [None]
